FAERS Safety Report 12458876 (Version 1)
Quarter: 2016Q2

REPORT INFORMATION
  Report Type: Spontaneous
  Country: KW (occurrence: KW)
  Receive Date: 20160613
  Receipt Date: 20160613
  Transmission Date: 20160815
  Serious: Yes (Hospitalization)
  Sender: FDA-Public Use
  Company Number: KW-ALEMBIC PHARMACUETICALS LIMITED-2016SCAL000428

PATIENT

DRUGS (5)
  1. ATOMOXETINE [Interacting]
     Active Substance: ATOMOXETINE
     Indication: ATTENTION DEFICIT/HYPERACTIVITY DISORDER
     Dosage: 40 MG, QD
  2. ATOMOXETINE [Interacting]
     Active Substance: ATOMOXETINE
     Dosage: 40 MG, BID
  3. FLUOXETINE HYDROCHLORIDE. [Suspect]
     Active Substance: FLUOXETINE HYDROCHLORIDE
     Indication: PRODUCT USED FOR UNKNOWN INDICATION
     Dosage: 40 MG, QD
  4. ATOMOXETINE [Interacting]
     Active Substance: ATOMOXETINE
     Dosage: 65 MG, QD
  5. ATOMOXETINE [Interacting]
     Active Substance: ATOMOXETINE
     Dosage: 2 WEEKS LATER 65 MG WAS GIVEN IN DIVIDED DOSES OF 40 MG AND 25 MG

REACTIONS (2)
  - Stress cardiomyopathy [Recovered/Resolved]
  - Drug interaction [Unknown]
